FAERS Safety Report 5521278-7 (Version None)
Quarter: 2007Q4

REPORT INFORMATION
  Report Type: 
  Country: None (occurrence: None)
  Receive Date: 20071119
  Receipt Date: 20061024
  Transmission Date: 20080405
  Serious: No
  Sender: FDA-Public Use
  Company Number: US-BOEHRINGER INGELHEIM PHARMACEUTICALS, INC.-2007-BP-00774BP

PATIENT
  Age: 70 Year
  Sex: Female

DRUGS (7)
  1. ZANTAC 150 [Suspect]
     Indication: DYSPEPSIA
     Route: 048
     Dates: start: 20061001
  2. CALCIUM [Concomitant]
     Indication: MEDICAL DIET
     Route: 048
  3. RAMIPRIL [Concomitant]
     Indication: HYPERTENSION
     Route: 048
     Dates: start: 20000101
  4. VITAMINS NOS [Concomitant]
     Indication: MEDICAL DIET
     Route: 048
  5. VALSARTAN [Concomitant]
     Indication: HYPERTENSION
     Route: 048
     Dates: start: 19980101
  6. ATORVASTATIN CALCIUM [Concomitant]
     Indication: HYPERCHOLESTEROLAEMIA
     Route: 048
     Dates: start: 19980101
  7. ERGOCALCIFEROL [Concomitant]
     Indication: MEDICAL DIET
     Route: 048
     Dates: start: 20061001

REACTIONS (2)
  - DIARRHOEA [None]
  - FLATULENCE [None]
